FAERS Safety Report 7772579-3 (Version None)
Quarter: 2011Q3

REPORT INFORMATION
  Report Type: 
  Country: None (occurrence: None)
  Receive Date: 20110922
  Receipt Date: 20110915
  Transmission Date: 20111222
  Serious: Yes (Hospitalization)
  Sender: FDA-Public Use
  Company Number: US-TEVA-300902USA

PATIENT
  Sex: Female

DRUGS (1)
  1. SIMVASTATIN [Suspect]

REACTIONS (2)
  - PAIN [None]
  - SCIATICA [None]
